FAERS Safety Report 17970934 (Version 3)
Quarter: 2020Q3

REPORT INFORMATION
  Report Type: Spontaneous
  Country: US (occurrence: US)
  Receive Date: 20200701
  Receipt Date: 20200730
  Transmission Date: 20201103
  Serious: Yes (Death, Other)
  Sender: FDA-Public Use
  Company Number: US-GILEAD-2020-0477763

PATIENT
  Age: 85 Year
  Sex: Male
  Weight: 90 kg

DRUGS (19)
  1. SUCRALFATE. [Concomitant]
     Active Substance: SUCRALFATE
  2. HEPARIN AXICUR [Concomitant]
  3. HYDROMORPHONE [Concomitant]
     Active Substance: HYDROMORPHONE
  4. CEFTRIAXONE. [Concomitant]
     Active Substance: CEFTRIAXONE
  5. CEFEPIME [Concomitant]
     Active Substance: CEFEPIME HYDROCHLORIDE
  6. NOREPINEPHRINE. [Concomitant]
     Active Substance: NOREPINEPHRINE
  7. SENNOSIDE [SENNOSIDE A+B] [Concomitant]
     Active Substance: SENNOSIDES A AND B
  8. MIDAZOLAM. [Concomitant]
     Active Substance: MIDAZOLAM
  9. REMDESIVIR. [Suspect]
     Active Substance: REMDESIVIR
     Indication: COVID-19
     Dosage: 100 MG, QD
     Route: 042
     Dates: start: 20200627, end: 20200629
  10. DEXAMETHASONE. [Concomitant]
     Active Substance: DEXAMETHASONE
  11. INSULIN [Concomitant]
     Active Substance: INSULIN NOS
  12. DEXMEDETOMIDINE. [Concomitant]
     Active Substance: DEXMEDETOMIDINE
  13. DOCUSATE [Concomitant]
     Active Substance: DOCUSATE
  14. VANCOMYCIN [Concomitant]
     Active Substance: VANCOMYCIN
  15. VASOPRESSIN. [Concomitant]
     Active Substance: VASOPRESSIN
  16. AZITHROMYCIN ANHYDROUS. [Concomitant]
     Active Substance: AZITHROMYCIN ANHYDROUS
  17. METHYLPREDNISOLONE. [Concomitant]
     Active Substance: METHYLPREDNISOLONE
  18. FAMOTIDINE. [Concomitant]
     Active Substance: FAMOTIDINE
  19. EPINEPHRINE. [Concomitant]
     Active Substance: EPINEPHRINE

REACTIONS (1)
  - Acute kidney injury [Fatal]

NARRATIVE: CASE EVENT DATE: 20200629
